FAERS Safety Report 22528622 (Version 1)
Quarter: 2023Q2

REPORT INFORMATION
  Report Type: Spontaneous
  Country: US (occurrence: US)
  Receive Date: 20230607
  Receipt Date: 20230607
  Transmission Date: 20230722
  Serious: Yes (Other)
  Sender: FDA-Public Use
  Company Number: US-BEH-2023159472

PATIENT
  Age: 66 Year
  Sex: Female
  Weight: 68.027 kg

DRUGS (2)
  1. HIZENTRA [Suspect]
     Active Substance: HUMAN IMMUNOGLOBULIN G
     Indication: Immunodeficiency common variable
     Dosage: UNK
     Route: 065
     Dates: start: 2013
  2. HIZENTRA [Suspect]
     Active Substance: HUMAN IMMUNOGLOBULIN G
     Dosage: 16 GRAM, QOW
     Route: 058
     Dates: start: 201612

REACTIONS (7)
  - Systemic lupus erythematosus [Unknown]
  - Infection [Unknown]
  - Weight decreased [Unknown]
  - Alopecia [Unknown]
  - Dizziness [Unknown]
  - Injection site rash [Unknown]
  - Rash [Unknown]

NARRATIVE: CASE EVENT DATE: 20220901
